FAERS Safety Report 19313086 (Version 1)
Quarter: 2021Q2

REPORT INFORMATION
  Report Type: Spontaneous
  Country: US (occurrence: US)
  Receive Date: 20210526
  Receipt Date: 20210526
  Transmission Date: 20210717
  Serious: No
  Sender: FDA-Public Use
  Company Number: None

PATIENT
  Age: 49 Year
  Sex: Female
  Weight: 81.19 kg

DRUGS (1)
  1. RITUXAN [Suspect]
     Active Substance: RITUXIMAB
     Indication: PEMPHIGUS
     Dosage: ?          OTHER ROUTE:IV?
     Route: 042
     Dates: start: 20210519, end: 20210519

REACTIONS (6)
  - Flushing [None]
  - Hypotension [None]
  - Pruritus [None]
  - Chills [None]
  - Oxygen saturation decreased [None]
  - Tachycardia [None]

NARRATIVE: CASE EVENT DATE: 20210519
